FAERS Safety Report 16373448 (Version 3)
Quarter: 2019Q3

REPORT INFORMATION
  Report Type: Spontaneous
  Country: AU (occurrence: AU)
  Receive Date: 20190530
  Receipt Date: 20190805
  Transmission Date: 20191004
  Serious: Yes (Hospitalization, Other)
  Sender: FDA-Public Use
  Company Number: AU-PFIZER INC-2019225877

PATIENT
  Age: 20 Year
  Sex: Male

DRUGS (3)
  1. EPILIM [Suspect]
     Active Substance: VALPROATE SODIUM
     Indication: BIPOLAR DISORDER
     Dosage: 1000 MG, 1X/DAY
     Dates: start: 20091210, end: 201207
  2. PRISTIQ EXTENDED-RELEASE [Suspect]
     Active Substance: DESVENLAFAXINE SUCCINATE
     Indication: BIPOLAR DISORDER
     Dosage: 200 MG, 1X/DAY
     Dates: start: 20091210, end: 201207
  3. QUILONUM [LITHIUM CARBONATE] [Suspect]
     Active Substance: LITHIUM CARBONATE
     Indication: BIPOLAR DISORDER
     Dosage: 900 MG, 1X/DAY
     Dates: start: 20091223, end: 201005

REACTIONS (39)
  - Tooth fracture [Not Recovered/Not Resolved]
  - Hypomania [Not Recovered/Not Resolved]
  - Drug level increased [Recovered/Resolved]
  - Vomiting [Unknown]
  - Tremor [Unknown]
  - Amnesia [Unknown]
  - Impulsive behaviour [Unknown]
  - Suicidal behaviour [Recovered/Resolved]
  - Bruxism [Not Recovered/Not Resolved]
  - Pain [Unknown]
  - Visual impairment [Unknown]
  - Dental caries [Unknown]
  - Paranoia [Unknown]
  - Heart rate increased [Unknown]
  - Jaundice [Recovered/Resolved]
  - Insomnia [Unknown]
  - Fall [Unknown]
  - Product use in unapproved indication [Unknown]
  - Pain in jaw [Unknown]
  - Toxicity to various agents [Unknown]
  - Psychotic disorder [Not Recovered/Not Resolved]
  - Personality change [Not Recovered/Not Resolved]
  - Emotional distress [Unknown]
  - Anger [Unknown]
  - Yellow skin [Unknown]
  - Dizziness [Unknown]
  - Weight decreased [Unknown]
  - Off label use [Unknown]
  - Muscle tightness [Unknown]
  - Sexual dysfunction [Unknown]
  - Hallucination [Unknown]
  - Muscular weakness [Unknown]
  - Decreased appetite [Unknown]
  - Dry mouth [Unknown]
  - Intentional self-injury [Recovered/Resolved]
  - Temporomandibular joint syndrome [Not Recovered/Not Resolved]
  - Inappropriate affect [Unknown]
  - Head injury [Unknown]
  - Contraindicated product administered [Unknown]

NARRATIVE: CASE EVENT DATE: 20091220
